FAERS Safety Report 14593525 (Version 1)
Quarter: 2018Q1

REPORT INFORMATION
  Report Type: Report from Study
  Country: BR (occurrence: BR)
  Receive Date: 20180302
  Receipt Date: 20180302
  Transmission Date: 20180509
  Serious: Yes (Death, Hospitalization, Other)
  Sender: FDA-Public Use
  Company Number: PHHY2018BR034336

PATIENT
  Age: 91 Year
  Sex: Female
  Weight: 50 kg

DRUGS (7)
  1. EXELON PATCH [Suspect]
     Active Substance: RIVASTIGMINE
     Indication: SENILE DEMENTIA
     Dosage: 4.6 MG, QD PATCH 5 (CM2)
     Route: 062
     Dates: start: 2011
  2. EXELON PATCH [Suspect]
     Active Substance: RIVASTIGMINE
     Dosage: 13.3 MG, QD PATCH 15 (CM2)
     Route: 062
     Dates: start: 2011
  3. LEXAPRO [Concomitant]
     Active Substance: ESCITALOPRAM OXALATE
     Indication: DEPRESSION
     Dosage: 1 DF, QD
     Route: 048
     Dates: start: 2016, end: 201705
  4. DOMPERIDONE [Concomitant]
     Active Substance: DOMPERIDONE
     Indication: MALAISE
     Dosage: UNK UNK, Q12H
     Route: 065
     Dates: start: 2017
  5. ELIQUIS [Concomitant]
     Active Substance: APIXABAN
     Indication: PROPHYLAXIS
     Dosage: 2.5 MG, Q12H (SINCE JAN/LAST YEAR)
     Route: 065
     Dates: start: 201701
  6. NEBILET [Concomitant]
     Active Substance: NEBIVOLOL
     Indication: BLOOD PRESSURE ABNORMAL
     Dosage: 1 DF, QD
     Route: 048
     Dates: start: 2015, end: 2017
  7. ATENOLOL. [Concomitant]
     Active Substance: ATENOLOL
     Indication: HEART RATE IRREGULAR
     Dosage: 1 DF, QD
     Route: 048
     Dates: start: 201701, end: 20170118

REACTIONS (17)
  - Blood pressure decreased [Fatal]
  - Blood sodium decreased [Unknown]
  - Fall [Unknown]
  - Influenza [Unknown]
  - Cardiac arrest [Fatal]
  - Blood pressure increased [Fatal]
  - Loss of consciousness [Fatal]
  - Gastrooesophageal reflux disease [Unknown]
  - Pneumonia [Fatal]
  - Cough [Fatal]
  - Intervertebral disc protrusion [Fatal]
  - Fatigue [Unknown]
  - Nosocomial infection [Fatal]
  - Coma [Fatal]
  - Weight decreased [Unknown]
  - Urinary tract infection [Unknown]
  - Dysstasia [Unknown]

NARRATIVE: CASE EVENT DATE: 2016
